FAERS Safety Report 26104587 (Version 1)
Quarter: 2025Q4

REPORT INFORMATION
  Report Type: Spontaneous
  Country: GB (occurrence: GB)
  Receive Date: 20251130
  Receipt Date: 20251130
  Transmission Date: 20260118
  Serious: Yes (Other)
  Sender: JOHNSON AND JOHNSON
  Company Number: None

PATIENT
  Sex: Male

DRUGS (1)
  1. APALUTAMIDE [Suspect]
     Active Substance: APALUTAMIDE
     Indication: Adverse drug reaction
     Dosage: 240MG - ONCE DAILY
     Route: 048

REACTIONS (2)
  - Ulcer [Unknown]
  - Fatigue [Unknown]

NARRATIVE: CASE EVENT DATE: 20251125
